FAERS Safety Report 17477951 (Version 1)
Quarter: 2020Q1

REPORT INFORMATION
  Report Type: Spontaneous
  Country: DE (occurrence: DE)
  Receive Date: 20200229
  Receipt Date: 20200229
  Transmission Date: 20200409
  Serious: Yes (Other)
  Sender: FDA-Public Use
  Company Number: DE-AUROBINDO-AUR-APL-2020-010065

PATIENT
  Age: 78 Year
  Sex: Male
  Weight: 67 kg

DRUGS (1)
  1. CEFUROXIME 500 MG FILM COATED TABLET [Suspect]
     Active Substance: CEFUROXIME SODIUM
     Indication: PHARYNGITIS
     Dosage: 2 DOSAGE FORM, ONCE A DAY
     Route: 065
     Dates: start: 20190816

REACTIONS (1)
  - Enterocolitis [Unknown]

NARRATIVE: CASE EVENT DATE: 20191206
